FAERS Safety Report 13794909 (Version 1)
Quarter: 2017Q3

REPORT INFORMATION
  Report Type: Spontaneous
  Country: GB (occurrence: GB)
  Receive Date: 20170726
  Receipt Date: 20170726
  Transmission Date: 20171127
  Serious: Yes (Other)
  Sender: FDA-Public Use
  Company Number: GB-PFIZER INC-2029724

PATIENT
  Age: 40 Year
  Sex: Male

DRUGS (4)
  1. DAPTOMYCIN. [Suspect]
     Active Substance: DAPTOMYCIN
     Indication: OFF LABEL USE
     Dosage: 6 MG/KG, UNK
     Route: 042
     Dates: start: 20100801, end: 20100901
  2. DAPTOMYCIN. [Suspect]
     Active Substance: DAPTOMYCIN
     Indication: ENDOCARDITIS STAPHYLOCOCCAL
     Dosage: 10 MG/KG, UNK
     Route: 042
     Dates: start: 20101001, end: 20110601
  3. RIFAMPICIN [Suspect]
     Active Substance: RIFAMPIN
     Indication: ENDOCARDITIS STAPHYLOCOCCAL
     Dosage: UNK
     Dates: start: 20100201, end: 20110901
  4. VANCOMYCIN HCL [Suspect]
     Active Substance: VANCOMYCIN HYDROCHLORIDE
     Indication: ENDOCARDITIS STAPHYLOCOCCAL
     Dosage: 4000 MG, UNK
     Route: 042
     Dates: start: 20100201, end: 20101001

REACTIONS (5)
  - Cardiac valve vegetation [Recovering/Resolving]
  - Therapy non-responder [Unknown]
  - Endocarditis staphylococcal [Recovered/Resolved]
  - Staphylococcal bacteraemia [Recovered/Resolved]
  - Embolism [Recovering/Resolving]
